FAERS Safety Report 7184752-6 (Version None)
Quarter: 2010Q4

REPORT INFORMATION
  Report Type: 
  Country: None (occurrence: None)
  Receive Date: 20101222
  Receipt Date: 20101213
  Transmission Date: 20110411
  Serious: No
  Sender: FDA-Public Use
  Company Number: US-PFIZER INC-2010173065

PATIENT
  Age: 81 Year
  Sex: Female
  Weight: 21.587 kg

DRUGS (5)
  1. ADVIL [Suspect]
     Indication: BACK PAIN
     Dosage: 1 TABLET, 1X/DAY
     Route: 048
     Dates: start: 20101201
  2. VICODIN [Concomitant]
  3. TOPROL-XL [Concomitant]
  4. ACETYLSALICYLIC ACID [Concomitant]
  5. AMLODIPINE [Concomitant]

REACTIONS (1)
  - DYSPEPSIA [None]
